FAERS Safety Report 22320384 (Version 2)
Quarter: 2023Q2

REPORT INFORMATION
  Report Type: Report from Study
  Country: CN (occurrence: CN)
  Receive Date: 20230515
  Receipt Date: 20230526
  Transmission Date: 20230722
  Serious: Yes (Death, Other)
  Sender: FDA-Public Use
  Company Number: CN-TEVA-2023-CN-2886622

PATIENT
  Sex: Female

DRUGS (8)
  1. CYCLOSPORINE [Suspect]
     Active Substance: CYCLOSPORINE
     Indication: Immunosuppressant drug therapy
     Route: 065
  2. CYTARABINE [Suspect]
     Active Substance: CYTARABINE
     Indication: Immunosuppressant drug therapy
     Dosage: 4 G/M2/DAY
     Route: 042
  3. BUSULFAN [Suspect]
     Active Substance: BUSULFAN
     Indication: Immunosuppressant drug therapy
     Dosage: 3.2 MG/KG DAILY;
     Route: 042
  4. CYCLOPHOSPHAMIDE [Suspect]
     Active Substance: CYCLOPHOSPHAMIDE
     Indication: Immunosuppressant drug therapy
     Dosage: 1.8 G/M2
     Route: 042
  5. SEMUSTINE [Suspect]
     Active Substance: SEMUSTINE
     Indication: Immunosuppressant drug therapy
     Dosage: ON DAY 3
     Route: 065
  6. THYMOCYTE IMMUNE GLOBULIN NOS [Suspect]
     Active Substance: THYMOCYTE IMMUNE GLOBULIN NOS
     Indication: Immunosuppressant drug therapy
     Dosage: 2.5 MG/KG DAILY;
     Route: 065
  7. MYCOPHENOLATE MOFETIL [Suspect]
     Active Substance: MYCOPHENOLATE MOFETIL
     Indication: Immunosuppressant drug therapy
     Route: 065
  8. METHOTREXATE [Suspect]
     Active Substance: METHOTREXATE
     Indication: Immunosuppressant drug therapy
     Route: 065

REACTIONS (3)
  - Skin infection [Fatal]
  - Soft tissue infection [Fatal]
  - Abscess [Unknown]
